FAERS Safety Report 8442194 (Version 2)
Quarter: 2012Q4

REPORT INFORMATION
  Report Type: 
  Country: BR (occurrence: BR)
  Receive Date: 20120306
  Receipt Date: 20121003
  Transmission Date: 20130627
  Serious: Yes (Other)
  Sender: FDA-Public Use
  Company Number: BR-AMGEN-BRASP2012012511

PATIENT
  Age: 68 Year
  Sex: Female
  Weight: 69 kg

DRUGS (6)
  1. ENBREL [Suspect]
     Indication: RHEUMATOID ARTHRITIS
     Dosage: 50 mg, 1x/week
     Route: 058
     Dates: start: 20101230, end: 201203
  2. REUQUINOL [Concomitant]
     Dosage: 400 mg, 1x/day
  3. CORTISONE [Concomitant]
     Dosage: 5 mg, 2x/day
  4. METFORMIN [Concomitant]
     Indication: DIABETES MELLITUS
     Dosage: UNK
  5. RETINOL [Concomitant]
     Dosage: UNK
  6. AMARYL [Concomitant]
     Dosage: UNK

REACTIONS (5)
  - Pain [Unknown]
  - Rheumatoid arthritis [Unknown]
  - Drug ineffective [Unknown]
  - Pyrexia [Unknown]
  - Lung infection [Unknown]
